FAERS Safety Report 6162771-6 (Version None)
Quarter: 2009Q2

REPORT INFORMATION
  Report Type: 
  Country: None (occurrence: None)
  Receive Date: 20090421
  Receipt Date: 20080619
  Transmission Date: 20091009
  Serious: No
  Sender: FDA-Public Use
  Company Number: US-ASTRAZENECA-2008UW12428

PATIENT
  Age: 38 Year
  Sex: Male
  Weight: 124.3 kg

DRUGS (3)
  1. METOPROLOL SUCCINATE [Suspect]
     Indication: HYPERTENSION
     Route: 048
  2. TRIAMTERENE [Concomitant]
  3. LISINOPRIL [Concomitant]

REACTIONS (2)
  - ABNORMAL FAECES [None]
  - DIARRHOEA [None]
